FAERS Safety Report 23332764 (Version 3)
Quarter: 2024Q2

REPORT INFORMATION
  Report Type: Spontaneous
  Country: US (occurrence: US)
  Receive Date: 20231222
  Receipt Date: 20240405
  Transmission Date: 20240716
  Serious: No
  Sender: FDA-Public Use
  Company Number: US-BAYER-2023A182879

PATIENT
  Age: 41 Year
  Sex: Female

DRUGS (2)
  1. ASTEPRO [Suspect]
     Active Substance: AZELASTINE HYDROCHLORIDE
     Indication: Hypersensitivity
     Dosage: 1 AND A HALF SPRAY, ONCE
     Route: 045
     Dates: start: 20231217, end: 20231217
  2. ASTEPRO [Suspect]
     Active Substance: AZELASTINE HYDROCHLORIDE
     Indication: Nasopharyngitis

REACTIONS (6)
  - Sneezing [Recovering/Resolving]
  - Feeling abnormal [Recovering/Resolving]
  - Paranasal sinus discomfort [Recovering/Resolving]
  - Headache [Recovering/Resolving]
  - Product delivery mechanism issue [Unknown]
  - Neck pain [None]
